FAERS Safety Report 5520984-8 (Version None)
Quarter: 2007Q4

REPORT INFORMATION
  Report Type: 
  Country: None (occurrence: None)
  Receive Date: 20071119
  Receipt Date: 20030305
  Transmission Date: 20080405
  Serious: Yes (Death)
  Sender: FDA-Public Use
  Company Number: JP-ROCHE-329358

PATIENT
  Age: 2 Year
  Sex: Male
  Weight: 13.6 kg

DRUGS (4)
  1. TAMIFLU [Suspect]
     Route: 048
     Dates: start: 20021230, end: 20021230
  2. PERIACTIN [Suspect]
     Route: 048
     Dates: start: 20021230, end: 20021230
  3. ASVERIN [Concomitant]
     Route: 048
     Dates: start: 20021230, end: 20021230
  4. BISOLVON [Concomitant]
     Route: 048
     Dates: start: 20021230, end: 20021230

REACTIONS (2)
  - CARDIAC ARREST [None]
  - SUDDEN DEATH [None]
